FAERS Safety Report 4837016-7 (Version None)
Quarter: 2005Q4

REPORT INFORMATION
  Report Type: 
  Country: None (occurrence: None)
  Receive Date: 20051121
  Receipt Date: 20051111
  Transmission Date: 20060501
  Serious: Yes (Hospitalization)
  Sender: FDA-Public Use
  Company Number: GBWYE096228OCT05

PATIENT
  Age: 5 Year
  Sex: Female

DRUGS (4)
  1. ANADIL IBUPROFEN (IBUPROFEN, TABLET) [Suspect]
     Indication: PYREXIA
     Dosage: 100 MG ONCE
  2. CYCLOSPORINE [Concomitant]
  3. AZATHIOPRINE [Concomitant]
  4. PREDNISONE [Concomitant]

REACTIONS (7)
  - ANURIA [None]
  - COXSACKIE VIRAL INFECTION [None]
  - DEHYDRATION [None]
  - DIARRHOEA [None]
  - DRUG INEFFECTIVE [None]
  - RASH [None]
  - RENAL FAILURE [None]
